FAERS Safety Report 5999474-4 (Version None)
Quarter: 2008Q4

REPORT INFORMATION
  Report Type: 
  Country: None (occurrence: None)
  Receive Date: 20081211
  Receipt Date: 20081211
  Transmission Date: 20090506
  Serious: No
  Sender: FDA-Public Use
  Company Number: None

PATIENT
  Sex: Female

DRUGS (1)
  1. ZOLEDRONIC ACID [Suspect]
     Dosage: IV
     Route: 042
     Dates: start: 20081121

REACTIONS (4)
  - CHEST PAIN [None]
  - MYALGIA [None]
  - NAUSEA [None]
  - PYREXIA [None]
